FAERS Safety Report 17124866 (Version 1)
Quarter: 2019Q4

REPORT INFORMATION
  Report Type: Spontaneous
  Country: GB (occurrence: GB)
  Receive Date: 20191206
  Receipt Date: 20191206
  Transmission Date: 20200122
  Serious: Yes (Death)
  Sender: FDA-Public Use
  Company Number: GB-PFIZER INC-2015449346

PATIENT
  Age: 32 Year
  Sex: Female

DRUGS (1)
  1. FENTANYL. [Suspect]
     Active Substance: FENTANYL
     Indication: PAIN
     Dosage: 1 DF, EVERY 72 HOURS
     Route: 062
     Dates: start: 2011

REACTIONS (5)
  - Accidental overdose [Fatal]
  - Product physical issue [Fatal]
  - Somnolence [Unknown]
  - Toxicity to various agents [Fatal]
  - Product quality issue [Fatal]

NARRATIVE: CASE EVENT DATE: 20150501
